FAERS Safety Report 19650656 (Version 1)
Quarter: 2021Q3

REPORT INFORMATION
  Report Type: Spontaneous
  Country: US (occurrence: US)
  Receive Date: 20210803
  Receipt Date: 20210803
  Transmission Date: 20211014
  Serious: No
  Sender: FDA-Public Use
  Company Number: US-ELI_LILLY_AND_COMPANY-US202108000860

PATIENT
  Sex: Male

DRUGS (1)
  1. ERBITUX [Suspect]
     Active Substance: CETUXIMAB
     Indication: COLON CANCER
     Dosage: UNK UNK, UNKNOWN
     Route: 065

REACTIONS (7)
  - Onychalgia [Unknown]
  - Onychoclasis [Unknown]
  - Dry skin [Unknown]
  - Scab [Unknown]
  - Bladder disorder [Unknown]
  - Nail bed bleeding [Unknown]
  - Rash pruritic [Unknown]
